FAERS Safety Report 4967036-3 (Version None)
Quarter: 2006Q1

REPORT INFORMATION
  Report Type: 
  Country: None (occurrence: None)
  Receive Date: 20060201
  Receipt Date: 20051205
  Transmission Date: 20060701
  Serious: No
  Sender: FDA-Public Use
  Company Number: 2005PV005435

PATIENT
  Age: 70 Year
  Sex: Female

DRUGS (5)
  1. BYETTA [Suspect]
     Indication: DIABETES MELLITUS NON-INSULIN-DEPENDENT
     Dosage: 5 MCG, BID, SC
     Route: 058
     Dates: start: 20051202
  2. GLUCOVANCE [Concomitant]
  3. GLUCOPHAGE [Concomitant]
  4. NEXIUM [Concomitant]
  5. PAXIL [Concomitant]

REACTIONS (3)
  - FATIGUE [None]
  - FEELING OF RELAXATION [None]
  - NAUSEA [None]
